FAERS Safety Report 4843598-1 (Version None)
Quarter: 2005Q4

REPORT INFORMATION
  Report Type: 
  Country: None (occurrence: None)
  Receive Date: 20051202
  Receipt Date: 20051123
  Transmission Date: 20060501
  Serious: Yes (Life-Threatening, Hospitalization)
  Sender: FDA-Public Use
  Company Number: FR-BRISTOL-MYERS SQUIBB COMPANY-13196092

PATIENT
  Age: 22 Day
  Sex: Female
  Weight: 3 kg

DRUGS (6)
  1. LOPRIL TABS [Suspect]
     Indication: CARDIAC DISORDER
     Dates: start: 20051027, end: 20051031
  2. LASILIX [Concomitant]
     Dosage: INITIAL DOSE 1 MG/KG/D;  INCREASED TO 2 MG/DG/D ON 27-OCT-2005
     Dates: start: 20051020
  3. DIGOXIN [Concomitant]
     Dates: start: 20051020
  4. CLAFORAN [Concomitant]
     Indication: PYREXIA
     Dates: start: 20051027, end: 20051029
  5. CLAMOXYL [Concomitant]
     Indication: PYREXIA
     Dates: start: 20051027, end: 20051029
  6. AMIKLIN [Concomitant]
     Indication: PYREXIA
     Dates: start: 20051027, end: 20051029

REACTIONS (3)
  - ANURIA [None]
  - METABOLIC ACIDOSIS [None]
  - RENAL FAILURE ACUTE [None]
